FAERS Safety Report 10273498 (Version 1)
Quarter: 2014Q3

REPORT INFORMATION
  Report Type: Spontaneous
  Country: BE (occurrence: BE)
  Receive Date: 20140702
  Receipt Date: 20140702
  Transmission Date: 20150326
  Serious: Yes (Hospitalization, Other)
  Sender: FDA-Public Use
  Company Number: BE-PFIZER INC-2014175944

PATIENT
  Age: 61 Year
  Sex: Female

DRUGS (9)
  1. TRAZODONE MYLAN [Concomitant]
     Dosage: 100 MG, UNK
  2. IBUPROFEN. [Suspect]
     Active Substance: IBUPROFEN
     Indication: POSTOPERATIVE ANALGESIA
     Dosage: UNK
  3. VOLTAREN [Interacting]
     Active Substance: DICLOFENAC SODIUM
     Indication: POSTOPERATIVE ANALGESIA
     Dosage: 75 MG, UNK
  4. TEMESTA [Concomitant]
     Active Substance: LORAZEPAM
     Dosage: 2.5 MG, UNK
  5. NOVOMIX [Concomitant]
     Active Substance: INSULIN ASPART
     Dosage: UNKNOWN
  6. FENOGAL LIDOSE [Concomitant]
     Dosage: 267 MG, UNK
  7. MANIPREX [Interacting]
     Active Substance: LITHIUM CARBONATE
     Indication: BIPOLAR DISORDER
     Dosage: 250 MG, 3X/DAY
  8. SERTRALINE EG [Concomitant]
     Active Substance: SERTRALINE HYDROCHLORIDE
     Dosage: 100 MG, UNK
  9. ZYPREXA [Concomitant]
     Active Substance: OLANZAPINE
     Dosage: 2.5 MG, UNK

REACTIONS (7)
  - Agitation [Unknown]
  - Drug interaction [Unknown]
  - Toxicity to various agents [Unknown]
  - Renal failure acute [Recovered/Resolved]
  - Hyperreflexia [Unknown]
  - Depressed level of consciousness [Unknown]
  - Coma [Unknown]
